FAERS Safety Report 22029826 (Version 3)
Quarter: 2023Q1

REPORT INFORMATION
  Report Type: Report from Study
  Country: IN (occurrence: IN)
  Receive Date: 20230223
  Receipt Date: 20230307
  Transmission Date: 20230418
  Serious: Yes (Hospitalization)
  Sender: FDA-Public Use
  Company Number: IN-PFIZER INC-PV202300028774

PATIENT
  Age: 14 Year
  Sex: Male
  Weight: 47 kg

DRUGS (10)
  1. PALBOCICLIB [Suspect]
     Active Substance: PALBOCICLIB
     Indication: Ewing^s sarcoma
     Dosage: 100 MG, 1X/DAY
     Route: 048
     Dates: start: 20230206, end: 20230211
  2. IRINOTECAN HYDROCHLORIDE [Suspect]
     Active Substance: IRINOTECAN HYDROCHLORIDE
     Indication: Ewing^s sarcoma
     Dosage: 69.5 MG, 1X/DAY IN 0.9% SODIUM (500ML)FOR 90 MINS
     Route: 042
     Dates: start: 20230206, end: 20230210
  3. TEMOZOLOMIDE [Suspect]
     Active Substance: TEMOZOLOMIDE
     Indication: Ewing^s sarcoma
     Dosage: 140 MG, 1X/DAY
     Route: 048
     Dates: start: 20230206, end: 20230210
  4. ONDANSETRON [Concomitant]
     Active Substance: ONDANSETRON
     Indication: Prophylaxis of nausea and vomiting
     Dosage: 4 MG, 3X/DAY
     Route: 042
     Dates: start: 20230213
  5. PANTOPRAZOLE [Concomitant]
     Active Substance: PANTOPRAZOLE
     Indication: Prophylaxis
     Dosage: 40 MG, 2X/DAY
     Route: 042
     Dates: start: 20230213
  6. IMODIUM [Concomitant]
     Active Substance: LOPERAMIDE HYDROCHLORIDE
     Indication: Prophylaxis against diarrhoea
     Dosage: 2 MG, AS NEEDED (SOS)
     Route: 048
     Dates: start: 20230213
  7. CIPROFLOXACIN [Concomitant]
     Active Substance: CIPROFLOXACIN
     Indication: Infection prophylaxis
     Dosage: 200 MG, 2X/DAY (BID)
     Route: 042
     Dates: start: 20230213, end: 20230216
  8. METRONIDAZOLE [Concomitant]
     Active Substance: METRONIDAZOLE
     Indication: Infection prophylaxis
     Dosage: 500 MG, 3X/DAY (TDS)
     Dates: start: 20230213, end: 20230216
  9. ENTEROGERMINA [BACILLUS CLAUSII] [Concomitant]
     Indication: Prophylaxis against diarrhoea
     Dosage: 5 ML RESPULES, 1X/DAY
     Dates: start: 20230213
  10. OCTREOTIDE [Concomitant]
     Active Substance: OCTREOTIDE
     Indication: Prophylaxis against diarrhoea
     Dosage: 200 UG, AS NEEDED (SOS)
     Route: 042
     Dates: start: 20230213, end: 20230216

REACTIONS (2)
  - Vomiting [Recovered/Resolved]
  - Nausea [Recovered/Resolved]

NARRATIVE: CASE EVENT DATE: 20230213
